FAERS Safety Report 4470824-3 (Version None)
Quarter: 2004Q4

REPORT INFORMATION
  Report Type: 
  Country: None (occurrence: None)
  Receive Date: 20041006
  Receipt Date: 20041006
  Transmission Date: 20050328
  Serious: Yes (Life-Threatening, Hospitalization)
  Sender: FDA-Public Use
  Company Number: None

PATIENT
  Sex: Female

DRUGS (2)
  1. BENZOCAINE  20%  BEUTLICH L.P. PHARMACEUTICALS [Suspect]
     Indication: ANAESTHESIA
     Dosage: 20%  1/2SEC X1  ORAL
     Route: 048
     Dates: start: 20040830, end: 20040830
  2. BENZOCAINE  20%  BEUTLICH L.P. PHARMACEUTICALS [Suspect]
     Indication: ENDOSCOPY
     Dosage: 20%  1/2SEC X1  ORAL
     Route: 048
     Dates: start: 20040830, end: 20040830

REACTIONS (1)
  - RESPIRATORY ARREST [None]
